FAERS Safety Report 8124411 (Version 2)
Quarter: 2013Q2

REPORT INFORMATION
  Report Type: Spontaneous
  Country: US (occurrence: US)
  Receive Date: 20110907
  Receipt Date: 20130405
  Transmission Date: 20140414
  Serious: Yes (Hospitalization)
  Sender: FDA-Public Use
  Company Number: US-GLAXOSMITHKLINE-A0897007A

PATIENT
  Age: 46 Year
  Sex: Male
  Weight: 118.6 kg

DRUGS (2)
  1. AVANDAMET [Suspect]
     Indication: DIABETES MELLITUS
     Route: 048
     Dates: start: 20050705, end: 20051107
  2. AVANDIA [Suspect]
     Indication: TYPE 2 DIABETES MELLITUS
     Route: 048
     Dates: end: 20070805

REACTIONS (3)
  - Coronary artery disease [Recovering/Resolving]
  - Arteriosclerosis [Unknown]
  - Cardiovascular disorder [Unknown]
